FAERS Safety Report 15030388 (Version 1)
Quarter: 2018Q2

REPORT INFORMATION
  Report Type: Spontaneous
  Country: DE (occurrence: DE)
  Receive Date: 20180619
  Receipt Date: 20180619
  Transmission Date: 20180711
  Serious: Yes (Hospitalization)
  Sender: FDA-Public Use
  Company Number: DE-US WORLDMEDS, LLC-STA_00019153

PATIENT
  Age: 80 Year
  Sex: Male
  Weight: 80 kg

DRUGS (7)
  1. AMITRIPTYLIN 10 MG [Concomitant]
     Indication: PRODUCT USED FOR UNKNOWN INDICATION
  2. QUETIAPIN 25 MG [Concomitant]
     Indication: PRODUCT USED FOR UNKNOWN INDICATION
  3. TASMAR [Suspect]
     Active Substance: TOLCAPONE
     Indication: PARKINSON^S DISEASE
     Route: 048
  4. APOMORPHINE HYDROCHLORIDE [Suspect]
     Active Substance: APOMORPHINE HYDROCHLORIDE
     Indication: PARKINSON^S DISEASE
     Route: 058
     Dates: start: 20141018
  5. TAMSULOSIN 0,4 MG [Concomitant]
     Indication: PRODUCT USED FOR UNKNOWN INDICATION
  6. DOPADURA 100/25MG [Concomitant]
     Indication: PARKINSON^S DISEASE
     Route: 048
  7. BALDRIAN [Concomitant]
     Active Substance: VALERIAN
     Indication: PRODUCT USED FOR UNKNOWN INDICATION

REACTIONS (3)
  - Injection site nodule [Not Recovered/Not Resolved]
  - Hallucination [Not Recovered/Not Resolved]
  - Thrombocytopenia [Not Recovered/Not Resolved]

NARRATIVE: CASE EVENT DATE: 20160922
